FAERS Safety Report 23594772 (Version 4)
Quarter: 2024Q3

REPORT INFORMATION
  Report Type: Report from Study
  Country: CA (occurrence: CA)
  Receive Date: 20240305
  Receipt Date: 20240911
  Transmission Date: 20241017
  Serious: Yes (Hospitalization, Disabling, Other)
  Sender: NOVARTIS
  Company Number: CA-002147023-NVSC2024CA046357

PATIENT
  Age: 37 Year
  Sex: Female

DRUGS (2)
  1. KESIMPTA [Suspect]
     Active Substance: OFATUMUMAB
     Indication: Relapsing-remitting multiple sclerosis
     Dosage: 20 MG/ 0.4 ML, QMO
     Route: 058
     Dates: start: 20221127
  2. KESIMPTA [Suspect]
     Active Substance: OFATUMUMAB
     Dosage: 20 MG
     Route: 065
     Dates: start: 20221203

REACTIONS (8)
  - Sepsis [Unknown]
  - Pyrexia [Unknown]
  - Ovarian mass [Unknown]
  - Ureteric compression [Unknown]
  - Hydronephrosis [Unknown]
  - Pelvic abscess [Recovering/Resolving]
  - Tooth infection [Recovered/Resolved]
  - Urinary tract infection [Recovered/Resolved]

NARRATIVE: CASE EVENT DATE: 20240801
